FAERS Safety Report 8819126 (Version 1)
Quarter: 2012Q4

REPORT INFORMATION
  Report Type: Spontaneous
  Country: US (occurrence: None)
  Receive Date: 20121004
  Receipt Date: 20121004
  Transmission Date: 20130627
  Serious: Yes (Hospitalization)
  Sender: FDA-Public Use
  Company Number: DL2012-0728

PATIENT
  Age: 28 Year
  Sex: Female

DRUGS (2)
  1. MIFEPRISTONE [Suspect]
     Route: 048
     Dates: start: 20120802
  2. MISOPROSTOL [Suspect]
     Route: 067
     Dates: start: 20120802

REACTIONS (6)
  - Abortion incomplete [None]
  - Haemorrhage [None]
  - Asthenia [None]
  - Vomiting [None]
  - Urinary tract infection [None]
  - Dizziness [None]
